FAERS Safety Report 25937004 (Version 2)
Quarter: 2025Q4

REPORT INFORMATION
  Report Type: Spontaneous
  Country: US (occurrence: US)
  Receive Date: 20251017
  Receipt Date: 20251121
  Transmission Date: 20260119
  Serious: No
  Sender: SHIONOGI
  Company Number: US-shionogi-202500010693

PATIENT
  Sex: Male

DRUGS (29)
  1. CEFIDEROCOL [Suspect]
     Active Substance: CEFIDEROCOL
     Indication: Multiple-drug resistance
     Dosage: INFUSED OVER THREE HOURS
  2. CEFIDEROCOL [Suspect]
     Active Substance: CEFIDEROCOL
     Indication: Pneumonia
  3. CEFIDEROCOL [Suspect]
     Active Substance: CEFIDEROCOL
     Indication: Pseudomonas infection
  4. CEFIDEROCOL [Suspect]
     Active Substance: CEFIDEROCOL
     Indication: Providencia infection
  5. CEFIDEROCOL [Suspect]
     Active Substance: CEFIDEROCOL
     Indication: Staphylococcal bacteraemia
  6. COLISTIN [Suspect]
     Active Substance: COLISTIN
     Indication: Pneumonia bacterial
  7. COLISTIN [Suspect]
     Active Substance: COLISTIN
     Indication: Pseudomonas infection
  8. COLISTIN [Suspect]
     Active Substance: COLISTIN
     Indication: Providencia infection
  9. COLISTIN [Suspect]
     Active Substance: COLISTIN
     Indication: Staphylococcal bacteraemia
  10. COLISTIN [Suspect]
     Active Substance: COLISTIN
     Indication: Multiple-drug resistance
  11. AVIBACTAM SODIUM\CEFTAZIDIME [Suspect]
     Active Substance: AVIBACTAM SODIUM\CEFTAZIDIME
     Indication: Pneumonia bacterial
     Dosage: AT TIME OF TRANSFER TO TERTIARY CARE HOSPITAL, 2.5 GRAMS EVERY 8 HOURS WITH A TWO-HOUR INFUSION
  12. AVIBACTAM SODIUM\CEFTAZIDIME [Suspect]
     Active Substance: AVIBACTAM SODIUM\CEFTAZIDIME
     Indication: Pseudomonas infection
     Dosage: STARTED ON DAY 14 OF HOSPITALIZATION, WITH FOUR HOUR INFUSION
  13. AVIBACTAM SODIUM\CEFTAZIDIME [Suspect]
     Active Substance: AVIBACTAM SODIUM\CEFTAZIDIME
     Indication: Providencia infection
  14. AVIBACTAM SODIUM\CEFTAZIDIME [Suspect]
     Active Substance: AVIBACTAM SODIUM\CEFTAZIDIME
     Indication: Staphylococcal bacteraemia
  15. AVIBACTAM SODIUM\CEFTAZIDIME [Suspect]
     Active Substance: AVIBACTAM SODIUM\CEFTAZIDIME
     Indication: Multiple-drug resistance
  16. PIPERACILLIN AND TAZOBACTAM [Suspect]
     Active Substance: PIPERACILLIN SODIUM\TAZOBACTAM SODIUM
     Indication: Pneumonia bacterial
     Dosage: 3.375 GRAMS EVERY 8 HOURS INFUSED OVER FOUR HOURS
  17. PIPERACILLIN AND TAZOBACTAM [Suspect]
     Active Substance: PIPERACILLIN SODIUM\TAZOBACTAM SODIUM
     Indication: Pseudomonas infection
  18. PIPERACILLIN AND TAZOBACTAM [Suspect]
     Active Substance: PIPERACILLIN SODIUM\TAZOBACTAM SODIUM
     Indication: Providencia infection
  19. PIPERACILLIN AND TAZOBACTAM [Suspect]
     Active Substance: PIPERACILLIN SODIUM\TAZOBACTAM SODIUM
     Indication: Staphylococcal bacteraemia
  20. PIPERACILLIN AND TAZOBACTAM [Suspect]
     Active Substance: PIPERACILLIN SODIUM\TAZOBACTAM SODIUM
     Indication: Multiple-drug resistance
  21. POLYMYXIN B [Suspect]
     Active Substance: POLYMYXIN B
     Indication: Pneumonia bacterial
     Dosage: LOADING DOSE
  22. POLYMYXIN B [Suspect]
     Active Substance: POLYMYXIN B
     Indication: Pseudomonas infection
     Dosage: 1 MILLION INTERNATIONAL UNITS
  23. POLYMYXIN B [Suspect]
     Active Substance: POLYMYXIN B
     Indication: Providencia infection
  24. POLYMYXIN B [Suspect]
     Active Substance: POLYMYXIN B
     Indication: Staphylococcal bacteraemia
  25. POLYMYXIN B [Suspect]
     Active Substance: POLYMYXIN B
     Indication: Multiple-drug resistance
  26. VANCOMYCIN [Concomitant]
     Active Substance: VANCOMYCIN
     Indication: Pneumonia bacterial
  27. VANCOMYCIN [Concomitant]
     Active Substance: VANCOMYCIN
     Indication: Pseudomonas infection
  28. VANCOMYCIN [Concomitant]
     Active Substance: VANCOMYCIN
     Indication: Providencia infection
  29. VANCOMYCIN [Concomitant]
     Active Substance: VANCOMYCIN
     Indication: Staphylococcal bacteraemia

REACTIONS (3)
  - Off label use [Unknown]
  - Drug ineffective [Unknown]
  - Drug resistance [Unknown]
